FAERS Safety Report 8583735-9 (Version None)
Quarter: 2012Q3

REPORT INFORMATION
  Report Type: 
  Country: None (occurrence: None)
  Receive Date: 20120810
  Receipt Date: 20120720
  Transmission Date: 20120928
  Serious: Yes (Hospitalization, Other)
  Sender: FDA-Public Use
  Company Number: US-009507513-2012SP000175

PATIENT

DRUGS (1)
  1. NUVARING [Suspect]
     Indication: CONTRACEPTION
     Dates: start: 20090303, end: 20100201

REACTIONS (7)
  - FALL [None]
  - HEPATIC STEATOSIS [None]
  - LIGAMENT SPRAIN [None]
  - PULMONARY EMBOLISM [None]
  - MUSCLE STRAIN [None]
  - CHOLELITHIASIS [None]
  - DEEP VEIN THROMBOSIS [None]
